FAERS Safety Report 4888167-2 (Version None)
Quarter: 2006Q1

REPORT INFORMATION
  Report Type: 
  Country: None (occurrence: None)
  Receive Date: 20060119
  Receipt Date: 20060111
  Transmission Date: 20060701
  Serious: Yes (Hospitalization)
  Sender: FDA-Public Use
  Company Number: 2006005840

PATIENT
  Age: 40 Year
  Sex: 0

DRUGS (3)
  1. LYRICA [Suspect]
     Dosage: 150 MG OR 225 MG (75 MG ^TWO OR THREE TIMES DAILY^) UNKNOWN
  2. CYTOXAN [Concomitant]
  3. PREDNISONE [Concomitant]

REACTIONS (1)
  - FLUID RETENTION [None]
